FAERS Safety Report 9448757 (Version 1)
Quarter: 2013Q3

REPORT INFORMATION
  Report Type: Spontaneous
  Country: JP (occurrence: JP)
  Receive Date: 20130808
  Receipt Date: 20130808
  Transmission Date: 20140515
  Serious: Yes (Hospitalization)
  Sender: FDA-Public Use
  Company Number: JP-ASTRAZENECA-2013SE60390

PATIENT
  Age: 73 Year
  Sex: Male
  Weight: 51 kg

DRUGS (8)
  1. OMEPRAL [Suspect]
     Route: 048
     Dates: start: 200912
  2. CARBOCISTEINE [Interacting]
     Dosage: DOSE UNKNOWN
     Route: 048
     Dates: start: 200912
  3. LOXOPROFEN [Interacting]
     Dosage: DOSE UNKNOWN
     Route: 048
     Dates: start: 200912
  4. RIFABUTIN [Suspect]
     Dosage: DOSE UNKNOWN
     Route: 065
  5. ETHAMBUTOL HYDROCHLORIDE [Concomitant]
     Dosage: DOSE UNKNOWN
     Route: 065
  6. ISONIAZID [Concomitant]
     Dosage: DOSE UNKNOWN
     Route: 065
  7. AMIKACIN SULFATE [Concomitant]
     Dosage: DOSE UNKNOWN
     Route: 065
  8. RIFAMPICIN [Concomitant]
     Dosage: DOSE UNKNOWN
     Route: 065

REACTIONS (2)
  - Drug interaction [Recovering/Resolving]
  - Lung disorder [Recovering/Resolving]
